FAERS Safety Report 8784516 (Version 2)
Quarter: 2012Q4

REPORT INFORMATION
  Report Type: Spontaneous
  Country: US (occurrence: None)
  Receive Date: 20120830
  Receipt Date: 20120906
  Transmission Date: 20130627
  Serious: Yes (Hospitalization)
  Sender: FDA-Public Use
  Company Number: 2012AP002662

PATIENT
  Age: 46 Year
  Sex: Female

DRUGS (3)
  1. LEVETIRACETAM [Suspect]
     Indication: SEIZURES
  2. PHENOBARBITAL [Suspect]
     Indication: SEIZURES
  3. PHENYTOIN [Suspect]
     Indication: SEIZURES

REACTIONS (3)
  - Hypothyroidism [None]
  - Septic shock [None]
  - Pneumonia aspiration [None]
